FAERS Safety Report 25934556 (Version 2)
Quarter: 2025Q4

REPORT INFORMATION
  Report Type: Report from Study
  Country: US (occurrence: US)
  Receive Date: 20251017
  Receipt Date: 20251022
  Transmission Date: 20260119
  Serious: Yes (Hospitalization)
  Sender: RECORDATI
  Company Number: US-ORPHANEU-2025004576

PATIENT
  Sex: Female
  Weight: 6.395 kg

DRUGS (5)
  1. CARBAGLU [Suspect]
     Active Substance: CARGLUMIC ACID
     Indication: Urea cycle disorder
     Dosage: TWO AND ONE-HALF TABLETS (500 MG) IN 7.5 ML OF WATER, TWO TIMES A DAY (ESTIMATED DOSE:156 MG/KG/DAY)
     Route: 048
  2. CARBAGLU [Suspect]
     Active Substance: CARGLUMIC ACID
     Indication: Propionic acidaemia
     Dosage: TWO AND ONE-HALF TABLETS (500 MG) IN 7.5 ML OF WATER IN MORNING AND 3 TABLETS IN 7.5 ML OF WATER IN
     Route: 048
  3. CARBAGLU [Suspect]
     Active Substance: CARGLUMIC ACID
     Dosage: TWO AND ONE-HALF TABLETS (500 MG) IN 7.5 ML OF WATER IN MORNING AND 3 TABLETS IN 7.5 ML OF WATER IN
     Route: 048
  4. SODIUM CITRATE [Suspect]
     Active Substance: SODIUM CITRATE
     Indication: Product used for unknown indication
     Dosage: UNK
  5. LEVOCARNITINE [Concomitant]
     Active Substance: LEVOCARNITINE
     Indication: Product used for unknown indication
     Dosage: 330 MILLIGRAM (FREQUENCY WAS NOT REPORTED (330 MG TABLET)
     Dates: start: 20250224

REACTIONS (11)
  - Hospitalisation [Recovered/Resolved]
  - Hospitalisation [Recovered/Resolved]
  - Ear pruritus [Unknown]
  - Device occlusion [Unknown]
  - Foreign body in throat [Unknown]
  - Fatigue [Unknown]
  - Weight decreased [Unknown]
  - Decreased appetite [Unknown]
  - Infantile spitting up [Unknown]
  - Vomiting [Unknown]
  - Vomiting [Unknown]

NARRATIVE: CASE EVENT DATE: 20250101
